FAERS Safety Report 5006925-0 (Version None)
Quarter: 2006Q2

REPORT INFORMATION
  Report Type: 
  Country: None (occurrence: None)
  Receive Date: 20060516
  Receipt Date: 20060503
  Transmission Date: 20061013
  Serious: Yes (Hospitalization, Disabling, Other)
  Sender: FDA-Public Use
  Company Number: RB-3106-2006

PATIENT
  Age: 35 Year
  Sex: Female

DRUGS (1)
  1. BUPRENORPHINE HCL [Suspect]
     Indication: DRUG DEPENDENCE
     Dosage: SC
     Route: 058

REACTIONS (8)
  - CRYOGLOBULINAEMIA [None]
  - CYANOSIS [None]
  - DIFFICULTY IN WALKING [None]
  - DRUG SCREEN POSITIVE [None]
  - EPIDERMAL NECROSIS [None]
  - INFLAMMATION [None]
  - INTENTIONAL DRUG MISUSE [None]
  - PURPURA [None]
